FAERS Safety Report 25025554 (Version 1)
Quarter: 2025Q1

REPORT INFORMATION
  Report Type: Report from Study
  Country: US (occurrence: US)
  Receive Date: 20250228
  Receipt Date: 20250228
  Transmission Date: 20250408
  Serious: Yes (Other)
  Sender: GILEAD
  Company Number: US-GILEAD-2025-0705596

PATIENT
  Age: 16 Year
  Sex: Female

DRUGS (6)
  1. AZTREONAM LYSINE [Suspect]
     Active Substance: AZTREONAM LYSINE
     Indication: Pseudomonas infection
     Route: 065
  2. PULMOZYME [Concomitant]
     Active Substance: DORNASE ALFA
     Route: 065
  3. ALBUTEROL SULFATE [Concomitant]
     Active Substance: ALBUTEROL SULFATE
     Route: 065
  4. CREON [Concomitant]
     Active Substance: PANCRELIPASE AMYLASE\PANCRELIPASE LIPASE\PANCRELIPASE PROTEASE
     Route: 065
  5. VITAMINS\ZINC [Concomitant]
     Active Substance: VITAMINS\ZINC
     Route: 065
  6. INSULIN ASPART [Concomitant]
     Active Substance: INSULIN ASPART
     Route: 065

REACTIONS (2)
  - Diabetes mellitus [Unknown]
  - Product use in unapproved indication [Unknown]
